FAERS Safety Report 8046514-7 (Version None)
Quarter: 2012Q1

REPORT INFORMATION
  Report Type: 
  Country: None (occurrence: None)
  Receive Date: 20120113
  Receipt Date: 20120111
  Transmission Date: 20120608
  Serious: Yes (Other)
  Sender: FDA-Public Use
  Company Number: US-ABBOTT-11P-163-0804363-00

PATIENT
  Sex: Male

DRUGS (1)
  1. PROMETRIUM [Suspect]
     Indication: MATERNAL EXPOSURE TIMING UNSPECIFIED
     Route: 064

REACTIONS (4)
  - FOETAL EXPOSURE DURING PREGNANCY [None]
  - BIRTH TRAUMA [None]
  - JAUNDICE [None]
  - BLOOD BILIRUBIN INCREASED [None]
